FAERS Safety Report 11609723 (Version 3)
Quarter: 2016Q1

REPORT INFORMATION
  Report Type: Report from Study
  Country: TW (occurrence: TW)
  Receive Date: 20151007
  Receipt Date: 20160111
  Transmission Date: 20160525
  Serious: No
  Sender: FDA-Public Use
  Company Number: PHHY2015TW063168

PATIENT
  Age: 62 Year
  Sex: Male

DRUGS (13)
  1. DESLORATADINE. [Concomitant]
     Active Substance: DESLORATADINE
     Indication: PRODUCT USED FOR UNKNOWN INDICATION
     Dosage: 5 MG, UNK
     Route: 048
     Dates: start: 20150224, end: 20150302
  2. OFLOXACIN. [Concomitant]
     Active Substance: OFLOXACIN
     Dosage: 400 MG, UNK
     Route: 048
     Dates: start: 20150324, end: 20150326
  3. MAGNESIUM OXIDE. [Concomitant]
     Active Substance: MAGNESIUM OXIDE
     Indication: PRODUCT USED FOR UNKNOWN INDICATION
     Dosage: 2 DF, (2 TAB)
     Route: 048
     Dates: start: 20140916, end: 20141229
  4. OFLOXACIN. [Concomitant]
     Active Substance: OFLOXACIN
     Indication: PRODUCT USED FOR UNKNOWN INDICATION
     Dosage: 400 MG, UNK
     Route: 048
     Dates: start: 20150310, end: 20150314
  5. OFLOXACIN. [Concomitant]
     Active Substance: OFLOXACIN
     Dosage: 400 MG, UNK
     Route: 048
     Dates: start: 20150331, end: 20150402
  6. OFLOXACIN. [Concomitant]
     Active Substance: OFLOXACIN
     Dosage: 400 MG, UNK
     Route: 048
     Dates: start: 20150317, end: 20150321
  7. ACETYLCYSTEINE. [Concomitant]
     Active Substance: ACETYLCYSTEINE
     Indication: PRODUCT USED FOR UNKNOWN INDICATION
     Dosage: 600 MG, UNK
     Route: 048
     Dates: start: 20150224, end: 20150302
  8. BROWN MIXTURE                      /01682301/ [Concomitant]
     Indication: PRODUCT USED FOR UNKNOWN INDICATION
     Dosage: 5 ML, UNK
     Route: 048
     Dates: start: 20150224, end: 20150302
  9. ALLEGRA [Concomitant]
     Active Substance: FEXOFENADINE HYDROCHLORIDE
     Indication: PRODUCT USED FOR UNKNOWN INDICATION
     Dosage: 60 MG, UNK
     Route: 048
     Dates: start: 20150421, end: 20150427
  10. MEDICON (DEXTROMETHORPHAN HYDROBROMIDE) [Concomitant]
     Active Substance: DEXTROMETHORPHAN HYDROBROMIDE
     Indication: PRODUCT USED FOR UNKNOWN INDICATION
     Dosage: 20 MG, UNK
     Route: 048
     Dates: start: 20150609, end: 20150615
  11. OFLOXACIN. [Concomitant]
     Active Substance: OFLOXACIN
     Dosage: 400 MG, UNK
     Route: 048
     Dates: start: 20150407, end: 20150411
  12. TASIGNA [Suspect]
     Active Substance: NILOTINIB
     Indication: CHRONIC MYELOID LEUKAEMIA
     Dosage: 600 MG, UNK
     Route: 048
     Dates: start: 20120404
  13. TAMSULOSIN [Concomitant]
     Active Substance: TAMSULOSIN
     Indication: BENIGN PROSTATIC HYPERPLASIA
     Dosage: 0.2 MG, UNK
     Route: 048
     Dates: start: 20140501, end: 20140801

REACTIONS (3)
  - Hiccups [Recovered/Resolved]
  - Gastrooesophageal reflux disease [Recovered/Resolved]
  - Abdominal distension [Recovered/Resolved]

NARRATIVE: CASE EVENT DATE: 20140107
